FAERS Safety Report 18715819 (Version 1)
Quarter: 2021Q1

REPORT INFORMATION
  Report Type: Spontaneous
  Country: US (occurrence: US)
  Receive Date: 20210107
  Receipt Date: 20210107
  Transmission Date: 20210419
  Serious: No
  Sender: FDA-Public Use
  Company Number: None

PATIENT
  Age: 31 Year
  Sex: Female

DRUGS (1)
  1. SPRYCEL [Suspect]
     Active Substance: DASATINIB
     Dosage: END DATE OF THERAPY: JANUARY 2020
     Route: 048
     Dates: start: 202012

REACTIONS (2)
  - Therapy cessation [None]
  - Adverse event [None]

NARRATIVE: CASE EVENT DATE: 20210107
